FAERS Safety Report 24907906 (Version 1)
Quarter: 2025Q1

REPORT INFORMATION
  Report Type: Report from Study
  Country: US (occurrence: US)
  Receive Date: 20250131
  Receipt Date: 20250131
  Transmission Date: 20250408
  Serious: No
  Sender: HRA PHARMA
  Company Number: US-ORG100014127-2024000114

PATIENT
  Age: 60 Year
  Sex: Male

DRUGS (3)
  1. METOPIRONE [Suspect]
     Active Substance: METYRAPONE
     Indication: Cushing^s syndrome
     Dosage: 02 CAPSULES THREE TIMES DAILY
     Route: 048
     Dates: start: 20240306
  2. METOPIRONE [Suspect]
     Active Substance: METYRAPONE
     Indication: Cushing^s syndrome
     Dosage: DOSE INCREASE FROM 12 TO 16
  3. METOPIRONE [Suspect]
     Active Substance: METYRAPONE
     Indication: Cushing^s syndrome
     Dosage: TAKE 4 CAPSULES EVERY 6 HOURS

REACTIONS (1)
  - Off label use [Not Recovered/Not Resolved]

NARRATIVE: CASE EVENT DATE: 20240306
